FAERS Safety Report 10668331 (Version 1)
Quarter: 2014Q4

REPORT INFORMATION
  Report Type: Spontaneous
  Country: US (occurrence: US)
  Receive Date: 20141222
  Receipt Date: 20141222
  Transmission Date: 20150529
  Serious: No
  Sender: FDA-Public Use
  Company Number: US-009507513-1412USA006190

PATIENT
  Age: 36 Year
  Sex: Female

DRUGS (2)
  1. PRINIVIL [Suspect]
     Active Substance: LISINOPRIL
  2. ZOCOR [Suspect]
     Active Substance: SIMVASTATIN

REACTIONS (1)
  - Exposure during pregnancy [Recovered/Resolved]
